FAERS Safety Report 6356658-3 (Version None)
Quarter: 2009Q3

REPORT INFORMATION
  Report Type: 
  Country: None (occurrence: None)
  Receive Date: 20090910
  Receipt Date: 20090910
  Transmission Date: 20100115
  Serious: No
  Sender: FDA-Public Use
  Company Number: None

PATIENT

DRUGS (2)
  1. HYDRALAZINE HCL [Suspect]
  2. VASOPRESSIN 20 UNITS/ML APP PHARMACEUTICALS [Suspect]

REACTIONS (1)
  - INTERCEPTED DRUG DISPENSING ERROR [None]
